FAERS Safety Report 8499382-3 (Version None)
Quarter: 2012Q2

REPORT INFORMATION
  Report Type: 
  Country: None (occurrence: None)
  Receive Date: 20120614
  Receipt Date: 20120604
  Transmission Date: 20120825
  Serious: Yes (Other)
  Sender: FDA-Public Use
  Company Number: 2012032557

PATIENT
  Age: 61 Year
  Sex: Female
  Weight: 90.7194 kg

DRUGS (1)
  1. HIZENTRA [Suspect]
     Indication: IMMUNODEFICIENCY
     Dosage: (0.2 GM/ML WEEKLY SUBCUTANEOUS)
     Route: 058
     Dates: start: 20110408, end: 20110530

REACTIONS (3)
  - CARDIAC DISORDER [None]
  - HEART RATE DECREASED [None]
  - PERIPHERAL VASCULAR DISORDER [None]
